FAERS Safety Report 23645911 (Version 2)
Quarter: 2024Q3

REPORT INFORMATION
  Report Type: Report from Study
  Country: US (occurrence: US)
  Receive Date: 20240319
  Receipt Date: 20240829
  Transmission Date: 20241016
  Serious: Yes (Disabling, Other)
  Sender: AMGEN
  Company Number: US-HORIZON THERAPEUTICS-HZN-2022-001989

PATIENT
  Age: 66 Year
  Sex: Female

DRUGS (13)
  1. TEPEZZA [Suspect]
     Active Substance: TEPROTUMUMAB-TRBW
     Indication: Endocrine ophthalmopathy
     Dosage: 702 MILLIGRAM,  (FIRST INFUSION)
     Route: 042
     Dates: start: 20210709
  2. TEPEZZA [Suspect]
     Active Substance: TEPROTUMUMAB-TRBW
     Dosage: 1337 MILLIGRAM, (SECOND INFISION)
     Route: 042
     Dates: start: 20210728
  3. TEPEZZA [Suspect]
     Active Substance: TEPROTUMUMAB-TRBW
     Dosage: 1370 MILLIGRAM, (THIRD INFUSION)
     Route: 042
     Dates: start: 20210821
  4. TEPEZZA [Suspect]
     Active Substance: TEPROTUMUMAB-TRBW
     Dosage: 1374 MILLIGRAM, (FOURTH INFUSION)
     Route: 042
     Dates: start: 20210911
  5. TEPEZZA [Suspect]
     Active Substance: TEPROTUMUMAB-TRBW
     Dosage: 1398 MILLIGRAM, (FIFTH INFUSION)
     Route: 042
     Dates: start: 20211002
  6. TEPEZZA [Suspect]
     Active Substance: TEPROTUMUMAB-TRBW
     Dosage: 1526 MILLIGRAM, (SIXTH INFUSION)
     Route: 042
     Dates: start: 20211023
  7. TEPEZZA [Suspect]
     Active Substance: TEPROTUMUMAB-TRBW
     Dosage: 1418 MILLIGRAM, (SEVENTH INFUSION)
     Route: 042
     Dates: start: 20211113
  8. TEPEZZA [Suspect]
     Active Substance: TEPROTUMUMAB-TRBW
     Dosage: 1452 MILLIGRAM, (EIGHT INFUSION)
     Route: 042
     Dates: start: 20211214
  9. ZOFRAN [Concomitant]
     Active Substance: ONDANSETRON HYDROCHLORIDE
     Dosage: 40 MILLIGRAM
     Route: 065
  10. ERYTHROMYCIN [Concomitant]
     Active Substance: ERYTHROMYCIN
     Dosage: UNK
     Route: 065
  11. LIDOCAINE HYDROCHLORIDE [Concomitant]
     Active Substance: LIDOCAINE HYDROCHLORIDE
     Dosage: UNK
     Route: 065
  12. TOBRADEX [Concomitant]
     Active Substance: DEXAMETHASONE\TOBRAMYCIN
     Dosage: UNK
     Route: 047
  13. MEDROL [Concomitant]
     Active Substance: METHYLPREDNISOLONE
     Dosage: 40 MILLIGRAM, QD
     Route: 065

REACTIONS (9)
  - Deafness neurosensory [Not Recovered/Not Resolved]
  - Endocrine ophthalmopathy [Not Recovered/Not Resolved]
  - Emotional distress [Not Recovered/Not Resolved]
  - Anxiety [Not Recovered/Not Resolved]
  - Allergic sinusitis [Unknown]
  - Dry eye [Unknown]
  - Strabismus [Unknown]
  - Onychoclasis [Not Recovered/Not Resolved]
  - Diarrhoea [Unknown]
